FAERS Safety Report 23339611 (Version 3)
Quarter: 2024Q1

REPORT INFORMATION
  Report Type: Report from Study
  Country: AU (occurrence: AU)
  Receive Date: 20231226
  Receipt Date: 20240126
  Transmission Date: 20240409
  Serious: Yes (Death)
  Sender: FDA-Public Use
  Company Number: AU-JNJFOC-20190414588

PATIENT
  Age: 77 Year
  Sex: Female

DRUGS (5)
  1. IMBRUVICA [Suspect]
     Active Substance: IBRUTINIB
     Indication: Ocular lymphoma
     Route: 048
     Dates: end: 20231220
  2. IMBRUVICA [Suspect]
     Active Substance: IBRUTINIB
     Indication: Ocular lymphoma
     Route: 048
  3. RITUXIMAB [Concomitant]
     Active Substance: RITUXIMAB
     Indication: Ocular lymphoma
     Route: 065
  4. METHOTREXATE [Concomitant]
     Active Substance: METHOTREXATE
     Indication: Ocular lymphoma
     Route: 031
  5. TEMOZOLOMIDE [Concomitant]
     Active Substance: TEMOZOLOMIDE
     Indication: Ocular lymphoma
     Route: 065

REACTIONS (5)
  - Pneumocystis jirovecii pneumonia [Fatal]
  - Off label use [Unknown]
  - Product use in unapproved indication [Unknown]
  - Adverse drug reaction [Unknown]
  - Central nervous system lymphoma [Fatal]
